FAERS Safety Report 17130799 (Version 1)
Quarter: 2019Q4

REPORT INFORMATION
  Report Type: Spontaneous
  Country: US (occurrence: US)
  Receive Date: 20191209
  Receipt Date: 20191209
  Transmission Date: 20200122
  Serious: No
  Sender: FDA-Public Use
  Company Number: US-ROCHE-2216688

PATIENT
  Age: 41 Year
  Sex: Female

DRUGS (7)
  1. NAPROXEN. [Concomitant]
     Active Substance: NAPROXEN
     Indication: DISCOMFORT
     Route: 065
  2. DIAZEPAM. [Suspect]
     Active Substance: DIAZEPAM
     Indication: DYSTONIA
  3. CARBIDOPA/LEVODOPA [Concomitant]
     Active Substance: CARBIDOPA\LEVODOPA
     Indication: DYSTONIA
  4. CARBIDOPA/LEVODOPA [Concomitant]
     Active Substance: CARBIDOPA\LEVODOPA
     Indication: ESSENTIAL TREMOR
  5. NAPROXEN. [Concomitant]
     Active Substance: NAPROXEN
     Indication: MUSCLE SPASMS
  6. IBUPROFEN. [Concomitant]
     Active Substance: IBUPROFEN
     Indication: FATIGUE
  7. DIAZEPAM. [Suspect]
     Active Substance: DIAZEPAM
     Indication: ESSENTIAL TREMOR
     Route: 065

REACTIONS (1)
  - Fatigue [Unknown]
